FAERS Safety Report 25791026 (Version 1)
Quarter: 2025Q3

REPORT INFORMATION
  Report Type: Spontaneous
  Country: EU (occurrence: EU)
  Receive Date: 20250911
  Receipt Date: 20250911
  Transmission Date: 20251021
  Serious: Yes (Congenital Anomaly)
  Sender: CIPLA
  Company Number: EU-AFSSAPS-LY2025001390

PATIENT

DRUGS (4)
  1. ESOMEPRAZOLE [Suspect]
     Active Substance: ESOMEPRAZOLE
     Indication: Cystic fibrosis
     Dosage: 40 MILLIGRAM, QD
     Route: 048
  2. KALYDECO [Suspect]
     Active Substance: IVACAFTOR
     Indication: Cystic fibrosis
     Route: 048
  3. ELEXACAFTOR\IVACAFTOR\TEZACAFTOR [Suspect]
     Active Substance: ELEXACAFTOR\IVACAFTOR\TEZACAFTOR
     Indication: Cystic fibrosis
     Route: 048
     Dates: start: 20210906
  4. PREDNISONE [Suspect]
     Active Substance: PREDNISONE
     Indication: Cystic fibrosis
     Dosage: 5 MILLIGRAM, QD
     Route: 048

REACTIONS (1)
  - Abortion induced [Recovered/Resolved with Sequelae]

NARRATIVE: CASE EVENT DATE: 20250324
